FAERS Safety Report 9375092 (Version 1)
Quarter: 2013Q2

REPORT INFORMATION
  Report Type: Spontaneous
  Country: US (occurrence: US)
  Receive Date: 20130628
  Receipt Date: 20130628
  Transmission Date: 20140414
  Serious: No
  Sender: FDA-Public Use
  Company Number: US-PFIZER INC-2013191938

PATIENT
  Age: 57 Year
  Sex: Female
  Weight: 73.02 kg

DRUGS (3)
  1. LYRICA [Suspect]
     Indication: NERVE INJURY
     Dosage: 150 MG, 2X/DAY
     Route: 048
     Dates: start: 20130625
  2. LORZONE [Concomitant]
     Indication: MUSCLE SPASMS
     Dosage: UNK
  3. OXYCODONE [Concomitant]
     Dosage: 10 MG, UNK

REACTIONS (3)
  - Euphoric mood [Recovered/Resolved]
  - Dizziness [Recovered/Resolved]
  - Feeling drunk [Recovered/Resolved]
